FAERS Safety Report 8977465 (Version 1)
Quarter: 2012Q4

REPORT INFORMATION
  Report Type: 
  Country: FR (occurrence: FR)
  Receive Date: 20121219
  Receipt Date: 20121219
  Transmission Date: 20130627
  Serious: Yes (Other)
  Sender: FDA-Public Use
  Company Number: FR-ABBOTT-12P-056-0971506-00

PATIENT
  Sex: Female
  Weight: 35 kg

DRUGS (1)
  1. ENANTONE LP [Suspect]
     Indication: PRECOCIOUS PUBERTY
     Route: 058
     Dates: start: 201101, end: 20120512

REACTIONS (2)
  - Injection site abscess [Recovered/Resolved]
  - Lipodystrophy acquired [None]
